FAERS Safety Report 6654893-8 (Version None)
Quarter: 2010Q1

REPORT INFORMATION
  Report Type: 
  Country: None (occurrence: None)
  Receive Date: 20100329
  Receipt Date: 20100318
  Transmission Date: 20100710
  Serious: Yes (Hospitalization)
  Sender: FDA-Public Use
  Company Number: 2006BI013958

PATIENT
  Age: 61 Year
  Sex: Female

DRUGS (4)
  1. AVONEX [Suspect]
     Indication: MULTIPLE SCLEROSIS
     Route: 030
     Dates: start: 20030101
  2. AVONEX [Suspect]
     Route: 030
     Dates: start: 19981111, end: 20030101
  3. IMURAN [Concomitant]
     Dates: start: 20060101, end: 20060501
  4. MECLIZINE [Concomitant]

REACTIONS (4)
  - DIABETIC VASCULAR DISORDER [None]
  - PAIN IN EXTREMITY [None]
  - THROMBOSIS [None]
  - UVEITIS [None]
